FAERS Safety Report 8936644 (Version 2)
Quarter: 2012Q4

REPORT INFORMATION
  Report Type: Report from Study
  Country: SG (occurrence: KH)
  Receive Date: 20121130
  Receipt Date: 20121205
  Transmission Date: 20130627
  Serious: Yes (Death)
  Sender: FDA-Public Use
  Company Number: SG-ROCHE-1160445

PATIENT
  Age: 69 Year
  Sex: Male

DRUGS (2)
  1. BEVACIZUMAB [Suspect]
     Indication: HEPATIC NEOPLASM MALIGNANT
     Route: 065
  2. RAPAMYCIN [Suspect]
     Indication: HEPATIC NEOPLASM MALIGNANT
     Route: 050

REACTIONS (1)
  - Death [Fatal]
